FAERS Safety Report 9648256 (Version 1)
Quarter: 2013Q4

REPORT INFORMATION
  Report Type: Spontaneous
  Country: US (occurrence: US)
  Receive Date: 20131028
  Receipt Date: 20131028
  Transmission Date: 20140711
  Serious: No
  Sender: FDA-Public Use
  Company Number: US-009507513-1310USA010362

PATIENT
  Sex: Female

DRUGS (2)
  1. NEXPLANON [Suspect]
     Indication: CONTRACEPTION
     Dosage: UNKNOWN
     Route: 059
  2. NEXPLANON [Suspect]
     Dosage: UNKNOWN
     Route: 059

REACTIONS (2)
  - Device difficult to use [Unknown]
  - Product quality issue [Unknown]
